FAERS Safety Report 11342270 (Version 1)
Quarter: 2015Q3

REPORT INFORMATION
  Report Type: Spontaneous
  Country: DE (occurrence: DE)
  Receive Date: 20150805
  Receipt Date: 20150805
  Transmission Date: 20151125
  Serious: Yes (Hospitalization)
  Sender: FDA-Public Use
  Company Number: DE-TEVA-582721GER

PATIENT
  Sex: Female

DRUGS (22)
  1. CITALOPRAM [Interacting]
     Active Substance: CITALOPRAM HYDROBROMIDE
     Dosage: 40 MILLIGRAM DAILY;
     Route: 048
     Dates: start: 20110110, end: 20110205
  2. SOLIAN [Interacting]
     Active Substance: AMISULPRIDE
     Dosage: 300 MILLIGRAM DAILY;
     Route: 048
     Dates: start: 20110118
  3. ABILIFY [Interacting]
     Active Substance: ARIPIPRAZOLE
     Dosage: 10
     Route: 048
     Dates: start: 20110115
  4. LORAZEPAM. [Concomitant]
     Active Substance: LORAZEPAM
     Dosage: 1.5
     Dates: start: 20101229
  5. ABILIFY [Interacting]
     Active Substance: ARIPIPRAZOLE
     Dosage: 5
     Route: 048
     Dates: start: 20110205
  6. LORAZEPAM. [Concomitant]
     Active Substance: LORAZEPAM
     Dosage: 2.0
     Dates: start: 20101226
  7. BIPERIDEN [Concomitant]
     Active Substance: BIPERIDEN
     Dosage: 4 MILLIGRAM DAILY;
     Route: 048
     Dates: start: 20110104, end: 20110131
  8. QUETIAPIN AL [Concomitant]
     Dosage: 50
     Dates: start: 20110125
  9. SOLIAN [Interacting]
     Active Substance: AMISULPRIDE
     Dosage: 100 MILLIGRAM DAILY;
     Route: 048
     Dates: start: 20110104, end: 20110110
  10. ABILIFY [Interacting]
     Active Substance: ARIPIPRAZOLE
     Dosage: 15
     Route: 048
     Dates: start: 20110118, end: 20110127
  11. ABILIFY [Interacting]
     Active Substance: ARIPIPRAZOLE
     Dosage: 10
     Route: 048
     Dates: start: 20110128, end: 20110204
  12. CITALOPRAM [Suspect]
     Active Substance: CITALOPRAM HYDROBROMIDE
     Dosage: 10 MILLIGRAM DAILY;
     Route: 048
     Dates: start: 20101226
  13. SOLIAN [Interacting]
     Active Substance: AMISULPRIDE
     Dosage: 100 MILLIGRAM DAILY;
     Route: 048
     Dates: start: 20110122, end: 20110125
  14. QUETIAPIN AL [Concomitant]
     Dosage: 100
     Dates: start: 20110126
  15. HALDOL [Interacting]
     Active Substance: HALOPERIDOL
     Dosage: 6 MILLIGRAM DAILY;
     Route: 048
     Dates: start: 20101226
  16. SOLIAN [Interacting]
     Active Substance: AMISULPRIDE
     Dosage: 400 MILLIGRAM DAILY;
     Route: 048
     Dates: start: 20110111, end: 20110117
  17. LORAZEPAM. [Concomitant]
     Active Substance: LORAZEPAM
     Dosage: 0.5
     Dates: start: 20110118, end: 20110121
  18. CITALOPRAM [Interacting]
     Active Substance: CITALOPRAM HYDROBROMIDE
     Dosage: 20 MILLIGRAM DAILY;
     Route: 048
     Dates: start: 20101229, end: 20110109
  19. ABILIFY [Interacting]
     Active Substance: ARIPIPRAZOLE
     Dosage: 5
     Route: 048
     Dates: start: 20110112
  20. LORAZEPAM. [Concomitant]
     Active Substance: LORAZEPAM
     Dosage: 1.0
     Dates: start: 20110104, end: 20110117
  21. HALDOL [Interacting]
     Active Substance: HALOPERIDOL
     Dosage: 6 MILLIGRAM DAILY;
     Route: 048
     Dates: start: 20101229, end: 20110104
  22. SOLIAN [Interacting]
     Active Substance: AMISULPRIDE
     Dosage: 200 MILLIGRAM DAILY;
     Route: 048
     Dates: start: 20110119

REACTIONS (2)
  - Tremor [Recovering/Resolving]
  - Drug interaction [Recovering/Resolving]

NARRATIVE: CASE EVENT DATE: 20110104
